FAERS Safety Report 10180607 (Version 1)
Quarter: 2014Q2

REPORT INFORMATION
  Report Type: Spontaneous
  Country: US (occurrence: US)
  Receive Date: 20140519
  Receipt Date: 20140519
  Transmission Date: 20141212
  Serious: No
  Sender: FDA-Public Use
  Company Number: US-AMGEN INC.-USASP2014020022

PATIENT
  Age: 83 Year
  Sex: Female

DRUGS (23)
  1. PROLIA [Suspect]
     Indication: PRODUCT USED FOR UNKNOWN INDICATION
     Dosage: UNK
     Route: 065
  2. ALLEGRA [Concomitant]
     Dosage: 180 MG, UNK
  3. SINGULAIR [Concomitant]
     Dosage: 10 MG, UNK
  4. CELEBREX [Concomitant]
     Dosage: 200 MG, UNK
  5. OMEPRAZOLE [Concomitant]
     Dosage: 20 MG, DAILY
  6. ASPIRIN [Concomitant]
     Dosage: 81 MG, UNK
  7. ADVAIR [Concomitant]
     Dosage: 100/50 TWO PUFFS DAILY,
  8. FLUTICASONE                        /00972202/ [Concomitant]
     Dosage: 50 MCG 2 SPRAYS EACH NOSTROL DAILY
  9. PROAIR                             /00139502/ [Concomitant]
  10. EFFEXOR [Concomitant]
     Dosage: 150 MG, UNK
  11. VERAPAMIL [Concomitant]
     Dosage: 120 MG, DAILY
  12. MAXZIDE [Concomitant]
     Dosage: 75/50 ONCE DAILY
  13. THERA TEARS [Concomitant]
     Dosage: UNK UNK, AS NECESSARY
  14. SUPER B COMPLEX                    /01995301/ [Concomitant]
     Dosage: UNK UNK, BID
  15. CALCIUM [Concomitant]
     Dosage: 600 MG, BID
  16. OSTEO BI-FLEX                      /01431201/ [Concomitant]
     Dosage: UNK UNK, BID
  17. FISH OIL [Concomitant]
     Dosage: 1200 MG, UNK
  18. VITAMIN E                          /00110501/ [Concomitant]
     Dosage: 400 MG, UNK
  19. VITAMIN C                          /00008001/ [Concomitant]
     Dosage: 1000 MG, UNK
  20. IRON [Concomitant]
     Dosage: 65 MG DAILY
  21. CALCIUM MAGNESIUM ZINC             /01320801/ [Concomitant]
  22. FLAX SEED OIL [Concomitant]
  23. MAGNESIUM OXIDE [Concomitant]
     Dosage: 400 MG, DAILY

REACTIONS (1)
  - Cyst [Unknown]
